FAERS Safety Report 7398743-3 (Version None)
Quarter: 2011Q2

REPORT INFORMATION
  Report Type: 
  Country: None (occurrence: None)
  Receive Date: 20110401
  Receipt Date: 20110401
  Transmission Date: 20111010
  Serious: Yes (Other)
  Sender: FDA-Public Use
  Company Number: None

PATIENT
  Age: 47 Year
  Sex: Female
  Weight: 81.6475 kg

DRUGS (2)
  1. LAMICTAL XR [Suspect]
  2. TRAZODONE HCL [Suspect]
     Indication: INSOMNIA
     Dosage: 100 MG 1 AT BEDTIME PO
     Route: 048
     Dates: start: 20110328, end: 20110331

REACTIONS (7)
  - DIZZINESS [None]
  - CONDITION AGGRAVATED [None]
  - HEADACHE [None]
  - VOMITING [None]
  - HOSTILITY [None]
  - FEELING ABNORMAL [None]
  - TINNITUS [None]
